FAERS Safety Report 19906638 (Version 1)
Quarter: 2021Q4

REPORT INFORMATION
  Report Type: Spontaneous
  Country: US (occurrence: US)
  Receive Date: 20211001
  Receipt Date: 20211001
  Transmission Date: 20220303
  Serious: Yes (Death)
  Sender: FDA-Public Use
  Company Number: US-PFIZER INC-2019289606

PATIENT
  Age: 59 Year
  Sex: Female

DRUGS (2)
  1. LYRICA [Suspect]
     Active Substance: PREGABALIN
     Indication: Neuropathy peripheral
     Dosage: UNK, 2X/DAY (TAKE IT TWICE)
  2. LYRICA [Suspect]
     Active Substance: PREGABALIN
     Dosage: UNK, 3X/DAY (3 TIMES A DAY)

REACTIONS (1)
  - Death [Fatal]
